FAERS Safety Report 5381612-8 (Version None)
Quarter: 2007Q2

REPORT INFORMATION
  Report Type: 
  Country: None (occurrence: None)
  Receive Date: 20070629
  Receipt Date: 20070306
  Transmission Date: 20071010
  Serious: Yes (Other)
  Sender: FDA-Public Use
  Company Number: US200703001250

PATIENT
  Age: 22 Year

DRUGS (2)
  1. HUMALOG [Suspect]
  2. LANTUS [Concomitant]

REACTIONS (3)
  - BLOOD GLUCOSE DECREASED [None]
  - HYPOGLYCAEMIC SEIZURE [None]
  - LOSS OF CONSCIOUSNESS [None]
